FAERS Safety Report 21335509 (Version 3)
Quarter: 2023Q2

REPORT INFORMATION
  Report Type: Spontaneous
  Country: JP (occurrence: JP)
  Receive Date: 20220915
  Receipt Date: 20230424
  Transmission Date: 20230721
  Serious: Yes (Hospitalization, Other)
  Sender: FDA-Public Use
  Company Number: JP-ONO-2022JP019484

PATIENT
  Age: 69 Year
  Sex: Male
  Weight: 64 kg

DRUGS (17)
  1. YERVOY [Suspect]
     Active Substance: IPILIMUMAB
     Indication: Metastatic renal cell carcinoma
     Dosage: 1MG/KG, 1TIME/3 WEEKS
     Route: 042
     Dates: start: 202108
  2. OPDIVO [Suspect]
     Active Substance: NIVOLUMAB
     Indication: Metastatic renal cell carcinoma
     Dosage: UNKNOWN
     Route: 041
     Dates: start: 202108
  3. OPDIVO [Suspect]
     Active Substance: NIVOLUMAB
     Route: 041
  4. CALCIUM CARBONATE [Concomitant]
     Active Substance: CALCIUM CARBONATE
     Indication: Product used for unknown indication
     Dosage: 3000MG, EVERYDAY
     Route: 048
  5. LANTHANUM CARBONATE [Concomitant]
     Active Substance: LANTHANUM CARBONATE
     Indication: Product used for unknown indication
     Dosage: 2250MG, EVERYDAY
     Route: 048
  6. ASPIRIN [Concomitant]
     Active Substance: ASPIRIN
     Indication: Product used for unknown indication
     Dosage: 100MG, EVERYDAY
     Route: 048
  7. BISOPROLOL FUMARATE [Concomitant]
     Active Substance: BISOPROLOL FUMARATE
     Indication: Product used for unknown indication
     Dosage: 0.625MG, EVERYDAY
     Route: 048
  8. SUCROFERRIC OXYHYDROXIDE [Concomitant]
     Active Substance: SUCROFERRIC OXYHYDROXIDE
     Indication: Product used for unknown indication
     Dosage: 1000MG, EVERYDAY
     Route: 048
  9. ESOMEPRAZOLE MAGNESIUM [Concomitant]
     Active Substance: ESOMEPRAZOLE MAGNESIUM
     Indication: Product used for unknown indication
     Dosage: 20MG, EVERYDAY
     Route: 048
  10. ESCITALOPRAM OXALATE [Concomitant]
     Active Substance: ESCITALOPRAM OXALATE
     Indication: Product used for unknown indication
     Dosage: 10MG, EVERYDAY
     Route: 048
  11. PREGABALIN [Concomitant]
     Active Substance: PREGABALIN
     Indication: Product used for unknown indication
     Dosage: 25MG, EVERYDAY
     Route: 048
  12. ALFACALCIDOL [Concomitant]
     Active Substance: ALFACALCIDOL
     Indication: Product used for unknown indication
     Dosage: 0.5MG, EVERYDAY
     Route: 048
  13. TRIAZOLAM [Concomitant]
     Active Substance: TRIAZOLAM
     Indication: Product used for unknown indication
     Dosage: 0.25MG, EVERYDAY
     Route: 048
  14. ZOLPIDEM TARTRATE [Concomitant]
     Active Substance: ZOLPIDEM TARTRATE
     Indication: Product used for unknown indication
     Dosage: 5MG, EVERYDAY
     Route: 048
  15. NIFEDIPINE [Concomitant]
     Active Substance: NIFEDIPINE
     Indication: Hypertension
     Dosage: 20MG, EVERYDAY
     Route: 048
  16. NIFEDIPINE [Concomitant]
     Active Substance: NIFEDIPINE
     Dosage: 40??????????
     Route: 048
  17. NIFEDIPINE [Concomitant]
     Active Substance: NIFEDIPINE
     Dosage: 20??????????
     Route: 048

REACTIONS (2)
  - Hypopituitarism [Recovering/Resolving]
  - Gastroenteritis staphylococcal [Unknown]

NARRATIVE: CASE EVENT DATE: 20210101
